FAERS Safety Report 19359151 (Version 1)
Quarter: 2021Q2

REPORT INFORMATION
  Report Type: Report from Study
  Country: US (occurrence: US)
  Receive Date: 20210602
  Receipt Date: 20210602
  Transmission Date: 20210717
  Serious: Yes (Hospitalization, Other)
  Sender: FDA-Public Use
  Company Number: US-TAIHO ONCOLOGY  INC-EU-2021-01621

PATIENT
  Age: 53 Year
  Sex: Female

DRUGS (11)
  1. LONSURF [Suspect]
     Active Substance: TIPIRACIL HYDROCHLORIDE\TRIFLURIDINE
     Indication: COLORECTAL CANCER
     Dosage: CYCLE UNKNOWN
     Route: 048
     Dates: start: 20210402
  2. DULOXETINE. [Concomitant]
     Active Substance: DULOXETINE
  3. BIOTIN [Concomitant]
     Active Substance: BIOTIN
  4. MULTIVITAMIN [Concomitant]
     Active Substance: VITAMINS
  5. IRON [Concomitant]
     Active Substance: IRON
  6. AVASTIN [Suspect]
     Active Substance: BEVACIZUMAB
     Indication: PRODUCT USED FOR UNKNOWN INDICATION
     Dosage: DOSE, FREQUENCY UNKNOWN
     Route: 042
  7. TAMSULOSIN [Concomitant]
     Active Substance: TAMSULOSIN
  8. LOPERAMIDE [Concomitant]
     Active Substance: LOPERAMIDE
  9. VITAMIN D [Concomitant]
     Active Substance: VITAMIN D NOS
  10. MIRTAZEPINE [Concomitant]
     Active Substance: MIRTAZAPINE
  11. ACETAMINOPHEN. [Concomitant]
     Active Substance: ACETAMINOPHEN

REACTIONS (6)
  - Weight decreased [Not Recovered/Not Resolved]
  - Febrile neutropenia [Not Recovered/Not Resolved]
  - Cytopenia [Not Recovered/Not Resolved]
  - Dehydration [Not Recovered/Not Resolved]
  - Diarrhoea [Not Recovered/Not Resolved]
  - Stomatitis [Not Recovered/Not Resolved]

NARRATIVE: CASE EVENT DATE: 20210521
